FAERS Safety Report 8941371 (Version 1)
Quarter: 2012Q4

REPORT INFORMATION
  Report Type: 
  Country: FR (occurrence: FR)
  Receive Date: 20121203
  Receipt Date: 20121203
  Transmission Date: 20130627
  Serious: Yes (Hospitalization)
  Sender: FDA-Public Use
  Company Number: FR-ELI_LILLY_AND_COMPANY-FR201211008178

PATIENT
  Sex: Female

DRUGS (1)
  1. OPTRUMA [Suspect]

REACTIONS (2)
  - Colitis ischaemic [Recovered/Resolved]
  - Intestinal infarction [Recovered/Resolved]
